FAERS Safety Report 23149003 (Version 2)
Quarter: 2023Q4

REPORT INFORMATION
  Report Type: Spontaneous
  Country: US (occurrence: US)
  Receive Date: 20231106
  Receipt Date: 20231116
  Transmission Date: 20240109
  Serious: Yes (Death)
  Sender: FDA-Public Use
  Company Number: US-FreseniusKabi-FK202317334

PATIENT

DRUGS (6)
  1. DEXAMETHASONE [Suspect]
     Active Substance: DEXAMETHASONE
     Indication: B precursor type acute leukaemia
     Dosage: 6 MG/M2 /DAY PO OR IV DIVIDED BID EVERY 4 WEEKS ON DAYS 1-5, 29-33, AND 57-61
  2. INOTUZUMAB OZOGAMICIN [Suspect]
     Active Substance: INOTUZUMAB OZOGAMICIN
     Indication: B precursor type acute leukaemia
     Dosage: 0.5 MG/M2, CYCLIC (ON DAY 1, 8 AND 15 OF A 28-DAY CYCLE)
     Route: 042
     Dates: start: 20210716, end: 20211026
  3. VINCRISTINE SULFATE [Suspect]
     Active Substance: VINCRISTINE SULFATE
     Indication: B precursor type acute leukaemia
     Dosage: 1.5 MG/M2 (MAXIMUM DOSE 2 MG) ON DAYS 1, 29, AND 57
     Route: 042
  4. MERCAPTOPURINE [Suspect]
     Active Substance: MERCAPTOPURINE
     Indication: B precursor type acute leukaemia
     Dosage: 75 MG/M2 /DAY ON DAYS 1-84
  5. METHOTREXATE SODIUM [Suspect]
     Active Substance: METHOTREXATE SODIUM
     Indication: B precursor type acute leukaemia
     Dosage: 15 MG ON DAY 1 GIVEN ON DAY 29 OF THE FIRST 4 COURSES OF MAINTENANCE ?THERAPY
  6. METHOTREXATE SODIUM [Suspect]
     Active Substance: METHOTREXATE SODIUM
     Dosage: 20 MG/M2 PO WEEKLY ON DAYS 8, 15, 22, 29, 36, 43, 50, 57, 64, 71, AND 78

REACTIONS (3)
  - Foetal death [Fatal]
  - Infection [Fatal]
  - Foetal exposure during pregnancy [Fatal]
